FAERS Safety Report 6662886-X (Version None)
Quarter: 2010Q2

REPORT INFORMATION
  Report Type: 
  Country: None (occurrence: None)
  Receive Date: 20100401
  Receipt Date: 20100318
  Transmission Date: 20101027
  Serious: Yes (Hospitalization, Disabling)
  Sender: FDA-Public Use
  Company Number: IL-JNJFOC-20100305658

PATIENT
  Sex: Male

DRUGS (4)
  1. CONCERTA [Suspect]
     Indication: ATTENTION DEFICIT/HYPERACTIVITY DISORDER
     Route: 048
  2. CONCERTA [Suspect]
     Route: 048
  3. RITALIN [Suspect]
     Indication: DYSTONIA
     Route: 065
  4. RITALIN [Suspect]
     Route: 065

REACTIONS (6)
  - DRUG INEFFECTIVE [None]
  - DYSKINESIA [None]
  - DYSTONIA [None]
  - FATIGUE [None]
  - HEADACHE [None]
  - TREMOR [None]
